FAERS Safety Report 7362020-7 (Version None)
Quarter: 2011Q1

REPORT INFORMATION
  Report Type: 
  Country: None (occurrence: None)
  Receive Date: 20110318
  Receipt Date: 20110315
  Transmission Date: 20110831
  Serious: Yes (Other)
  Sender: FDA-Public Use
  Company Number: JP-PFIZER INC-2011058416

PATIENT
  Age: 72 Year
  Sex: Male

DRUGS (9)
  1. MAG-LAX [Concomitant]
     Dosage: 660 MG, DAILY
     Dates: start: 20100802
  2. FENTANYL [Concomitant]
     Dosage: 8.4 MG, UNK
     Route: 062
     Dates: start: 20100802
  3. LYRICA [Suspect]
     Indication: NEURALGIA
     Dosage: 300 MG DAILY
     Route: 048
     Dates: start: 20110210
  4. CELECOXIB [Concomitant]
     Dosage: 200 MG, DAILY
     Route: 048
     Dates: start: 20100802
  5. TEGRETOL [Concomitant]
     Dosage: 200 MG, DAILY
     Route: 048
     Dates: start: 20100802
  6. LYRICA [Suspect]
     Dosage: 150 MG DAILY
     Route: 048
     Dates: start: 20110203, end: 20110209
  7. GASMOTIN [Concomitant]
     Dosage: 15 MG, DAILY
     Dates: start: 20100802
  8. DAI-KENCHU-TO [Concomitant]
     Dosage: UNK
     Dates: start: 20100802
  9. OXINORM [Concomitant]
     Dosage: 10 MG, DAILY
     Route: 048
     Dates: start: 20100802

REACTIONS (2)
  - BREAST MASS [None]
  - BREAST PAIN [None]
